FAERS Safety Report 17576358 (Version 1)
Quarter: 2020Q1

REPORT INFORMATION
  Report Type: Spontaneous
  Country: US (occurrence: US)
  Receive Date: 20200324
  Receipt Date: 20200324
  Transmission Date: 20200409
  Serious: Yes (Death, Other)
  Sender: FDA-Public Use
  Company Number: US-GLAXOSMITHKLINE-US2020GSK048642

PATIENT
  Sex: Female

DRUGS (5)
  1. PREVACID [Suspect]
     Active Substance: LANSOPRAZOLE
     Indication: GASTROOESOPHAGEAL REFLUX DISEASE
     Dosage: UNK
  2. PANTOPRAZOLE [Suspect]
     Active Substance: PANTOPRAZOLE
     Indication: GASTROOESOPHAGEAL REFLUX DISEASE
     Dosage: 40 MG
     Route: 065
     Dates: start: 20140414, end: 20140719
  3. OMEPRAZOLE. [Suspect]
     Active Substance: OMEPRAZOLE
     Dosage: 40 UNK
     Route: 065
     Dates: start: 20170411, end: 20180701
  4. PANTOPRAZOLE [Suspect]
     Active Substance: PANTOPRAZOLE
     Dosage: 20 UNK
     Route: 065
     Dates: start: 20180611
  5. OMEPRAZOLE. [Suspect]
     Active Substance: OMEPRAZOLE
     Indication: GASTROOESOPHAGEAL REFLUX DISEASE
     Dosage: 20 MG
     Route: 065
     Dates: start: 20090826, end: 20140102

REACTIONS (9)
  - Gastric cancer [Fatal]
  - Abdominal tenderness [Unknown]
  - Adenocarcinoma gastric [Unknown]
  - Gastrointestinal wall thickening [Unknown]
  - Metastases to liver [Unknown]
  - Hepatic lesion [Unknown]
  - Abdominal distension [Unknown]
  - Abdominal pain [Unknown]
  - Dysphagia [Unknown]
